FAERS Safety Report 21140773 (Version 4)
Quarter: 2022Q4

REPORT INFORMATION
  Report Type: Spontaneous
  Country: US (occurrence: US)
  Receive Date: 20220728
  Receipt Date: 20221109
  Transmission Date: 20230113
  Serious: No
  Sender: FDA-Public Use
  Company Number: US-TEVA-2022-US-2056210

PATIENT
  Age: 84 Year
  Sex: Female

DRUGS (10)
  1. LOVASTATIN [Suspect]
     Active Substance: LOVASTATIN
     Indication: Product used for unknown indication
     Route: 065
     Dates: start: 2014
  2. PRAVASTATIN [Suspect]
     Active Substance: PRAVASTATIN
     Indication: Product used for unknown indication
     Dosage: HALF OF THE PILL
     Route: 065
     Dates: start: 2015
  3. OXYBUTYNIN [Suspect]
     Active Substance: OXYBUTYNIN
     Indication: Product used for unknown indication
     Route: 065
  4. ATELVIA [Suspect]
     Active Substance: RISEDRONATE SODIUM
     Indication: Bone disorder
     Route: 065
  5. IBANDRONATE SODIUM [Suspect]
     Active Substance: IBANDRONATE SODIUM
     Indication: Product used for unknown indication
     Route: 065
  6. FOSAMAX [Suspect]
     Active Substance: ALENDRONATE SODIUM
     Indication: Product used for unknown indication
     Route: 065
  7. VESICARE [Suspect]
     Active Substance: SOLIFENACIN SUCCINATE
     Indication: Product used for unknown indication
     Route: 065
  8. ACTONEL [Concomitant]
     Active Substance: RISEDRONATE SODIUM
     Indication: Bone disorder
     Route: 065
  9. ZETIA [Concomitant]
     Active Substance: EZETIMIBE
     Indication: Blood cholesterol increased
     Dosage: FOR 16-18 YEARS
     Route: 065
  10. DETROL [Concomitant]
     Active Substance: TOLTERODINE TARTRATE
     Indication: Hypertonic bladder
     Route: 065

REACTIONS (22)
  - Arthralgia [Unknown]
  - Musculoskeletal disorder [Unknown]
  - Rotator cuff syndrome [Unknown]
  - Gait inability [Unknown]
  - Rash [Unknown]
  - Muscle spasms [Unknown]
  - Diarrhoea [Unknown]
  - Joint swelling [Unknown]
  - Flatulence [Unknown]
  - Abdominal distension [Unknown]
  - Amnesia [Unknown]
  - Confusional state [Unknown]
  - Myalgia [Unknown]
  - Drug ineffective [Unknown]
  - Gastrointestinal disorder [Unknown]
  - Diverticulum [Unknown]
  - Weight decreased [Unknown]
  - Eructation [Unknown]
  - Asthenia [Unknown]
  - Memory impairment [Unknown]
  - Swelling [Unknown]
  - Hypokinesia [Unknown]
